FAERS Safety Report 21006160 (Version 1)
Quarter: 2022Q2

REPORT INFORMATION
  Report Type: Report from Study
  Country: GB (occurrence: GB)
  Receive Date: 20220624
  Receipt Date: 20220624
  Transmission Date: 20220721
  Serious: Yes (Other)
  Sender: FDA-Public Use
  Company Number: GB-UCBSA-2021044211

PATIENT
  Age: 27 Year
  Sex: Female

DRUGS (1)
  1. CERTOLIZUMAB PEGOL [Suspect]
     Active Substance: CERTOLIZUMAB PEGOL
     Indication: Psoriasis
     Dosage: 400 MILLIGRAM, EV 2 WEEKS(QOW)
     Route: 058
     Dates: start: 20200316, end: 202109

REACTIONS (5)
  - Prolonged pregnancy [Unknown]
  - Psoriasis [Not Recovered/Not Resolved]
  - Maternal exposure before pregnancy [Unknown]
  - Maternal exposure during pregnancy [Unknown]
  - Off label use [Unknown]

NARRATIVE: CASE EVENT DATE: 20200401
